FAERS Safety Report 16824081 (Version 1)
Quarter: 2019Q3

REPORT INFORMATION
  Report Type: Spontaneous
  Country: CN (occurrence: CN)
  Receive Date: 20190918
  Receipt Date: 20190918
  Transmission Date: 20191005
  Serious: Yes (Hospitalization, Other)
  Sender: FDA-Public Use
  Company Number: CN-NOVOPROD-684031

PATIENT
  Age: 44 Year
  Sex: Female
  Weight: 74 kg

DRUGS (4)
  1. GLUCOPHAGE [Concomitant]
     Active Substance: METFORMIN HYDROCHLORIDE
     Indication: PRODUCT USED FOR UNKNOWN INDICATION
     Dosage: UNK
     Route: 065
     Dates: start: 201906
  2. NOVORAPID [Suspect]
     Active Substance: INSULIN ASPART
     Indication: TYPE 2 DIABETES MELLITUS
     Dosage: 44 IU, QD (20U IN THE MORNING, 6U AT NOON AND 18U IN THE EVENING)
     Route: 058
     Dates: start: 201905
  3. NOVORAPID [Suspect]
     Active Substance: INSULIN ASPART
     Dosage: 44 IU, QD (20U IN THE MORNING, 6U AT NOON AND 18U IN THE EVENING)
     Route: 058
     Dates: start: 20190831
  4. NOVORAPID [Suspect]
     Active Substance: INSULIN ASPART
     Dosage: 44 IU, QD (20U IN THE MORNING, 6U AT NOON AND 18U IN THE EVENING)
     Route: 058
     Dates: start: 20190805

REACTIONS (2)
  - Gastroenteritis [Recovering/Resolving]
  - Drug hypersensitivity [Unknown]

NARRATIVE: CASE EVENT DATE: 20190831
